FAERS Safety Report 17292593 (Version 1)
Quarter: 2020Q1

REPORT INFORMATION
  Report Type: Report from Study
  Country: ES (occurrence: ES)
  Receive Date: 20200121
  Receipt Date: 20200121
  Transmission Date: 20200409
  Serious: Yes (Death, Hospitalization)
  Sender: FDA-Public Use
  Company Number: ES-BAYER-2019-238047

PATIENT
  Sex: Male
  Weight: 87 kg

DRUGS (26)
  1. DUODART [Concomitant]
     Active Substance: DUTASTERIDE\TAMSULOSIN
     Dosage: 1 TABLET DAILY
     Dates: start: 20150102
  2. ENALAPRIL [Concomitant]
     Active Substance: ENALAPRIL
     Dosage: 20 MG, QD
     Dates: start: 20150102
  3. EUTIROX [Concomitant]
     Active Substance: LEVOTHYROXINE SODIUM
     Dosage: 175 MG QD
     Dates: start: 20180713, end: 20181002
  4. FLUMIL [FLUCONAZOLE] [Concomitant]
     Dosage: 300 MG, TID
     Dates: start: 20190724, end: 20190727
  5. EUTIROX [Concomitant]
     Active Substance: LEVOTHYROXINE SODIUM
     Dosage: 175 MG DAILY
     Dates: start: 20170316, end: 20180209
  6. EUTIROX [Concomitant]
     Active Substance: LEVOTHYROXINE SODIUM
     Dosage: 20 MG QD
     Dates: start: 20181002, end: 20181204
  7. EUTIROX [Concomitant]
     Active Substance: LEVOTHYROXINE SODIUM
     Dosage: 185 MG PER MONTH
     Dates: start: 20181204
  8. SODIUM CHLORIDE. [Concomitant]
     Active Substance: SODIUM CHLORIDE
     Dosage: 500 ML, TID
     Route: 042
     Dates: start: 20190724, end: 20190726
  9. NATECAL [Concomitant]
     Active Substance: CALCIUM CARBONATE\CHOLECALCIFEROL
     Dosage: T TABLET THREE TIMES DAILY
     Dates: start: 20160606
  10. INHIXA [Concomitant]
     Active Substance: ENOXAPARIN SODIUM
     Dosage: 10000 IU, QD
     Dates: start: 20190704, end: 20190723
  11. OMEPRAZOLUM [Concomitant]
     Dosage: 20 MG, QD
     Dates: start: 20150102
  12. SALBUTAMOL [Concomitant]
     Active Substance: ALBUTEROL
     Dosage: 200 MG, PRN
     Dates: start: 20190715
  13. GLUCOSALINO [Concomitant]
     Dosage: 500 ML, TID
     Route: 042
     Dates: start: 20190724, end: 20190726
  14. COLCHICINA [Concomitant]
     Active Substance: COLCHICINE
     Dosage: 1 MG, QD
     Dates: start: 20150220, end: 20170618
  15. SINTROM [Concomitant]
     Active Substance: ACENOCOUMAROL
     Dosage: 4 MG, QD
     Dates: start: 20150102, end: 20190704
  16. FUROSEMIDE. [Concomitant]
     Active Substance: FUROSEMIDE
     Dosage: 40 MG, QD
     Dates: start: 20150102
  17. ALOPURINOL [Concomitant]
     Active Substance: ALLOPURINOL
     Dosage: 1 CAPSULE DAILY
     Dates: start: 20150102
  18. SALMETEROL [Concomitant]
     Active Substance: SALMETEROL
     Dosage: 50 MG, BID
     Dates: start: 20190724, end: 20190727
  19. SORAFENIB [Suspect]
     Active Substance: SORAFENIB
     Indication: POORLY DIFFERENTIATED THYROID CARCINOMA
     Dosage: 200 MG, BID
     Dates: start: 20190715, end: 20190723
  20. EUTIROX [Concomitant]
     Active Substance: LEVOTHYROXINE SODIUM
     Dosage: 200 MG DAILY
     Dates: start: 20180209, end: 20190713
  21. HIDROFEROL [Concomitant]
     Active Substance: CALCIFEDIOL
     Dosage: 1 AMPULE
     Dates: start: 20160708
  22. CLEXANE [Concomitant]
     Active Substance: ENOXAPARIN SODIUM
     Dosage: 40 MG, PRN
     Dates: start: 20190725, end: 20190727
  23. FUROSEMIDE. [Concomitant]
     Active Substance: FUROSEMIDE
     Dosage: 20 MG, QD
     Dates: start: 20190724, end: 20190727
  24. EUTIROX [Concomitant]
     Active Substance: LEVOTHYROXINE SODIUM
     Dosage: 150 MG QD
     Dates: start: 20160627, end: 20170317
  25. AUGMENTINE [AMOXICILLIN;CLAVULANIC ACID] [Concomitant]
     Active Substance: AMOXICILLIN\CLAVULANIC ACID
     Dosage: 1 AMPULE FOUR TIMES PER DAY
     Dates: start: 20190724, end: 20190727
  26. BICARBONATO SODICO [Concomitant]
     Dosage: 1 PACKAGE THREE TIMES PER DAY
     Dates: start: 20190725, end: 20190725

REACTIONS (2)
  - Acute kidney injury [Not Recovered/Not Resolved]
  - Pneumonia [Not Recovered/Not Resolved]

NARRATIVE: CASE EVENT DATE: 20190723
